FAERS Safety Report 6325143-7 (Version None)
Quarter: 2009Q3

REPORT INFORMATION
  Report Type: 
  Country: None (occurrence: None)
  Receive Date: 20090818
  Receipt Date: 20090501
  Transmission Date: 20100115
  Serious: Yes (Hospitalization, Other)
  Sender: FDA-Public Use
  Company Number: WAES 0904USA01520

PATIENT
  Age: 62 Year
  Sex: Female

DRUGS (7)
  1. JANUVIA [Suspect]
     Indication: DIABETES MELLITUS
     Dosage: 25 MG/DAILY/PO
     Route: 048
     Dates: start: 20090320
  2. GLYBURIDE [Suspect]
     Indication: DIABETES MELLITUS
     Dates: start: 20090326, end: 20090401
  3. NEXIUM [Concomitant]
  4. EPOETIN [Concomitant]
  5. FUROSEMIDE [Concomitant]
  6. GLIPIZIDE [Concomitant]
  7. PRAVASTATIN SODIUM [Concomitant]

REACTIONS (1)
  - HYPOGLYCAEMIA [None]
